FAERS Safety Report 20471649 (Version 1)
Quarter: 2022Q1

REPORT INFORMATION
  Report Type: Spontaneous
  Country: JP (occurrence: JP)
  Receive Date: 20220214
  Receipt Date: 20220214
  Transmission Date: 20220424
  Serious: Yes (Other)
  Sender: FDA-Public Use
  Company Number: JP-PFIZER INC-202200179404

PATIENT
  Age: 50 Year
  Sex: Male

DRUGS (4)
  1. BEVACIZUMAB [Suspect]
     Active Substance: BEVACIZUMAB
     Indication: Sarcomatoid carcinoma of the lung
     Dosage: COMPLETED IN THREE CYCLES FOLLOWED BY MAINTENANCE THERAPY WITH ATEZOLIZUMAB AND BEVACIZUMAB
  2. PACLITAXEL [Suspect]
     Active Substance: PACLITAXEL
     Indication: Sarcomatoid carcinoma of the lung
     Dosage: COMPLETED IN THREE CYCLES FOLLOWED BY MAINTENANCE THERAPY WITH ATEZOLIZUMAB AND BEVACIZUMAB
  3. CARBOPLATIN [Suspect]
     Active Substance: CARBOPLATIN
     Indication: Sarcomatoid carcinoma of the lung
     Dosage: COMPLETED 3 CYCLES
  4. ATEZOLIZUMAB [Suspect]
     Active Substance: ATEZOLIZUMAB
     Indication: Sarcomatoid carcinoma of the lung
     Dosage: COMPLETED IN THREE CYCLES FOLLOWED BY MAINTENANCE THERAPY WITH ATEZOLIZUMAB AND BEVACIZUMAB

REACTIONS (4)
  - Adrenal insufficiency [Unknown]
  - Neutropenia [Unknown]
  - Hypertension [Unknown]
  - Peripheral sensory neuropathy [Unknown]
